FAERS Safety Report 9827750 (Version 1)
Quarter: 2013Q4

REPORT INFORMATION
  Report Type: Spontaneous
  Country: US (occurrence: None)
  Receive Date: 20131120
  Receipt Date: 20131120
  Transmission Date: 20140711
  Serious: Yes (Other)
  Sender: FDA-Public Use
  Company Number: 1000047973

PATIENT
  Age: 79 Year
  Sex: Male

DRUGS (18)
  1. VIIBRYD [Suspect]
     Indication: DEPRESSION
     Dosage: 10MG (10 MG, 1 IN 1 D), ORAL
     Route: 048
     Dates: start: 20130716, end: 20130722
  2. VIIBRYD [Suspect]
     Indication: DEPRESSION
     Dosage: 40MG (40 MG, 1 IN 1 D), ORAL
     Route: 048
     Dates: start: 20130730, end: 20130818
  3. ALLOPURINOL (ALLOPURINOL) (ALLOPURINOL) [Concomitant]
  4. ATORVASTATIN (ATORVASTATIN) (ATORVASTATIN) [Concomitant]
  5. FINASTERIDE (FINASTERIDE) (FINASTERIDE) [Concomitant]
  6. FUROSEMIDE (FUROSEMIDE) (FUROSEMIDE) [Concomitant]
  7. HYDROCODONE/APAP (VICODIN) (VICODIN) [Concomitant]
  8. ISOSORBIDE (ISOSORBIDE) (ISOSORBIDE) [Concomitant]
  9. LANTUS (INSULIN GLARGINE) (INSULIN GLARGINE) [Concomitant]
  10. LEVOTHYROXINE (LEVOTHYROXINE SODIUM) [Concomitant]
  11. METOPROLOL (METOPROLOL) (METOPROLOL) [Concomitant]
  12. NITROSTAT (GLYCERYL TRINITRATE) (GLYCERYL TRINITRATE) [Concomitant]
  13. NOVOLOG (INSULIN ASPART) (INSULIN ASPART) [Concomitant]
  14. OMEPRAZOLE (OMEPRAZOLE) (OMEPRAZOLE) [Concomitant]
  15. POTASSIUM (POTASSIUM) (POTASSIUM) [Concomitant]
  16. RAMIPRIL (RAMIPRIL) (RAMIPRIL) [Concomitant]
  17. RANEXA (RANOLAZINE) (RANOLAZINE) [Concomitant]
  18. TERAZOSIN (TERAZOSIN) (TERAZOSIN) [Concomitant]

REACTIONS (1)
  - Hallucination [None]
